FAERS Safety Report 19838066 (Version 1)
Quarter: 2021Q3

REPORT INFORMATION
  Report Type: Spontaneous
  Country: DE (occurrence: DE)
  Receive Date: 20210916
  Receipt Date: 20210916
  Transmission Date: 20211014
  Serious: Yes (Hospitalization)
  Sender: FDA-Public Use
  Company Number: DE-TEVA-2021-DE-1951511

PATIENT
  Age: 61 Year
  Sex: Female

DRUGS (7)
  1. FOSTER 100/6MIKROGRAMM [Concomitant]
     Dosage: 1 DOSAGE FORMS DAILY; 1?0?0?0, METERED DOSE INHALER
     Route: 055
  2. ACC 200MG [Concomitant]
     Dosage: 600 MILLIGRAM DAILY; 1?1?0?0
     Route: 048
  3. IBUPROFEN. [Suspect]
     Active Substance: IBUPROFEN
     Dosage: REGULARLY FOR WEEKS
     Route: 048
  4. PANTOPRAZOL [Concomitant]
     Active Substance: PANTOPRAZOLE SODIUM
     Dosage: 80 MILLIGRAM DAILY; 1?0?1?0
     Route: 048
  5. PIRITRAMID [Concomitant]
     Dosage: IF NECESSARY,
     Route: 048
  6. PROTHYRID [Concomitant]
     Active Substance: LEVOTHYROXINE SODIUM
     Dosage: 1 DOSAGE FORMS DAILY; 100 | 10 UG, 1?0?0?0
     Route: 048
  7. METAMIZOL [Concomitant]
     Active Substance: METAMIZOLE SODIUM
     Dosage: 4 GRAM DAILY; 1?1?1?1
     Route: 048

REACTIONS (5)
  - Abdominal pain [Recovering/Resolving]
  - Haematoma [Recovering/Resolving]
  - Vomiting [Recovering/Resolving]
  - Abdominal pain upper [Recovering/Resolving]
  - Decreased appetite [Recovering/Resolving]
